FAERS Safety Report 5803073-4 (Version None)
Quarter: 2008Q2

REPORT INFORMATION
  Report Type: 
  Country: None (occurrence: None)
  Receive Date: 20080626
  Receipt Date: 20080428
  Transmission Date: 20081010
  Serious: Yes (Other)
  Sender: FDA-Public Use
  Company Number: A03200801609

PATIENT
  Sex: Female

DRUGS (1)
  1. AMBIEN CR [Suspect]
     Dosage: 1 DF QD - ORAL
     Route: 048

REACTIONS (2)
  - FEELING DRUNK [None]
  - HALLUCINATION, VISUAL [None]
